FAERS Safety Report 9708730 (Version 2)
Quarter: 2013Q4

REPORT INFORMATION
  Report Type: Spontaneous
  Country: US (occurrence: US)
  Receive Date: 20131125
  Receipt Date: 20131218
  Transmission Date: 20140711
  Serious: Yes (Death)
  Sender: FDA-Public Use
  Company Number: US-GLAXOSMITHKLINE-A1051106A

PATIENT
  Age: 50 Year
  Sex: Female

DRUGS (6)
  1. VOTRIENT [Suspect]
     Indication: RENAL CANCER
     Dosage: 800MG PER DAY
     Route: 048
     Dates: start: 20130717, end: 20130913
  2. PRILOSEC [Concomitant]
  3. MIRALAX [Concomitant]
  4. FENTANYL [Concomitant]
  5. TYLENOL [Concomitant]
  6. MEGACE [Concomitant]

REACTIONS (2)
  - Metastatic renal cell carcinoma [Fatal]
  - Drug ineffective [Fatal]
